FAERS Safety Report 18588591 (Version 2)
Quarter: 2020Q4

REPORT INFORMATION
  Report Type: Report from Study
  Country: JP (occurrence: JP)
  Receive Date: 20201207
  Receipt Date: 20201221
  Transmission Date: 20210114
  Serious: Yes (Life-Threatening)
  Sender: FDA-Public Use
  Company Number: JP-GILEAD-2020-0507459

PATIENT
  Age: 92 Year
  Sex: Female

DRUGS (2)
  1. REMDESIVIR. [Suspect]
     Active Substance: REMDESIVIR
     Indication: COVID-19
     Dosage: UNK
     Route: 065
  2. DEXAMETHASONE. [Suspect]
     Active Substance: DEXAMETHASONE
     Indication: PRODUCT USED FOR UNKNOWN INDICATION
     Dosage: UNK
     Route: 065

REACTIONS (8)
  - White blood cell count increased [Not Recovered/Not Resolved]
  - Delirium [Recovering/Resolving]
  - Insomnia [Recovering/Resolving]
  - Oxygen saturation abnormal [Recovered/Resolved]
  - Blood glucose increased [Recovering/Resolving]
  - Constipation [Recovering/Resolving]
  - Blood lactate dehydrogenase increased [Unknown]
  - Serum ferritin increased [Unknown]

NARRATIVE: CASE EVENT DATE: 20201014
